FAERS Safety Report 4613647-4 (Version None)
Quarter: 2005Q1

REPORT INFORMATION
  Report Type: 
  Country: None (occurrence: None)
  Receive Date: 20050315
  Receipt Date: 20040223
  Transmission Date: 20050727
  Serious: No
  Sender: FDA-Public Use
  Company Number: 7466

PATIENT
  Age: 35 Year
  Sex: Female

DRUGS (5)
  1. PAMIDRONATE DISODIUM [Suspect]
     Indication: HYPERCALCAEMIA
     Dosage: 90 MG
  2. ERGOCALCIFEROL [Concomitant]
  3. VITAMIN D [Concomitant]
  4. THYROXINE [Concomitant]
  5. SODIUM CHLORIDE [Concomitant]

REACTIONS (6)
  - BLOOD PARATHYROID HORMONE DECREASED [None]
  - HYPOAESTHESIA [None]
  - HYPOCALCAEMIA [None]
  - OVERDOSE [None]
  - PARAESTHESIA [None]
  - TETANY [None]
